FAERS Safety Report 4451493-5 (Version None)
Quarter: 2004Q3

REPORT INFORMATION
  Report Type: 
  Country: None (occurrence: None)
  Receive Date: 20040915
  Receipt Date: 20040824
  Transmission Date: 20050211
  Serious: Yes (Hospitalization)
  Sender: FDA-Public Use
  Company Number: 2004-BP-07333AU

PATIENT
  Age: 37 Year
  Sex: Female

DRUGS (1)
  1. MOBIC [Suspect]
     Indication: PAIN
     Dosage: 15 MG (15 MG, 15MG ONCE DAILY), PO
     Route: 048
     Dates: start: 20040617, end: 20040617

REACTIONS (7)
  - CHEST DISCOMFORT [None]
  - EYE SWELLING [None]
  - OROPHARYNGEAL SWELLING [None]
  - RASH [None]
  - SWELLING FACE [None]
  - THROAT TIGHTNESS [None]
  - URTICARIA [None]
